FAERS Safety Report 21094843 (Version 7)
Quarter: 2022Q4

REPORT INFORMATION
  Report Type: Report from Study
  Country: US (occurrence: US)
  Receive Date: 20220718
  Receipt Date: 20221216
  Transmission Date: 20230113
  Serious: No
  Sender: FDA-Public Use
  Company Number: US-NOVARTISTESTPH-NVSC2022US162308

PATIENT
  Sex: Female

DRUGS (3)
  1. ENTRESTO [Suspect]
     Active Substance: SACUBITRIL\VALSARTAN
     Indication: Product used for unknown indication
     Dosage: 200 MG, BID  (97/103 MG: 97.2 MG SACUBITRIL AND 102.8 MG VALSARTAN)
     Route: 065
  2. ENTRESTO [Suspect]
     Active Substance: SACUBITRIL\VALSARTAN
     Dosage: 200 MG, QD (97/103 MG:97.2 MG SACUBITRIL AND 102.8 MG VALSARTAN 1 QPM)
     Route: 065
  3. ENTRESTO [Suspect]
     Active Substance: SACUBITRIL\VALSARTAN
     Dosage: 100 MG, BID (49/51 MG: 48.6 MG SACUBITRIL AND 51.4 MG VALSARTAN)
     Route: 065

REACTIONS (11)
  - Feeling abnormal [Unknown]
  - Weight decreased [Unknown]
  - Full blood count decreased [Unknown]
  - Glycosylated haemoglobin decreased [Unknown]
  - Glucose tolerance impaired [Unknown]
  - Depression [Unknown]
  - Insomnia [Unknown]
  - Taste disorder [Unknown]
  - Eating disorder [Unknown]
  - Hypotension [Unknown]
  - Product use issue [Unknown]
